FAERS Safety Report 6109047-0 (Version None)
Quarter: 2009Q1

REPORT INFORMATION
  Report Type: 
  Country: None (occurrence: None)
  Receive Date: 20090310
  Receipt Date: 20090224
  Transmission Date: 20090719
  Serious: Yes (Other)
  Sender: FDA-Public Use
  Company Number: US-BAYER-200912657NA

PATIENT

DRUGS (4)
  1. AVELOX [Suspect]
     Indication: PNEUMONIA
     Dates: start: 20090117
  2. VYTORIN [Concomitant]
  3. NIASPAN [Concomitant]
  4. LEXAPRO [Concomitant]
     Indication: DEPRESSION

REACTIONS (6)
  - DYSPNOEA [None]
  - HYPERSENSITIVITY [None]
  - OEDEMA PERIPHERAL [None]
  - PHARYNGEAL OEDEMA [None]
  - RASH [None]
  - SWOLLEN TONGUE [None]
